FAERS Safety Report 9206844 (Version 1)
Quarter: 2013Q1

REPORT INFORMATION
  Report Type: Spontaneous
  Country: US (occurrence: None)
  Receive Date: 20120718
  Receipt Date: 20120718
  Transmission Date: 20140127
  Serious: Yes (Hospitalization)
  Sender: FDA-Public Use
  Company Number: 2011SP034559

PATIENT
  Age: 70 Year
  Sex: Female

DRUGS (1)
  1. INTEGRILIN [Suspect]
     Route: 042
     Dates: start: 201107

REACTIONS (1)
  - Haemorrhage [None]
